FAERS Safety Report 13244514 (Version 1)
Quarter: 2017Q1

REPORT INFORMATION
  Report Type: Spontaneous
  Country: US (occurrence: US)
  Receive Date: 20170216
  Receipt Date: 20170216
  Transmission Date: 20170428
  Serious: No
  Sender: FDA-Public Use
  Company Number: US-JAZZ-2017-US-000016

PATIENT
  Sex: Female

DRUGS (34)
  1. NEXIUM [Concomitant]
     Active Substance: ESOMEPRAZOLE MAGNESIUM
  2. SALINE                             /00075401/ [Concomitant]
     Active Substance: SODIUM CHLORIDE
  3. VITAMIN D3 [Concomitant]
     Active Substance: CHOLECALCIFEROL
  4. KLONOPIN [Concomitant]
     Active Substance: CLONAZEPAM
  5. PREVACID [Concomitant]
     Active Substance: LANSOPRAZOLE
  6. XYREM [Suspect]
     Active Substance: SODIUM OXYBATE
     Indication: NARCOLEPSY
     Dosage: 2.25 G, BID
     Route: 048
     Dates: start: 200404, end: 2004
  7. ADVAIR HFA [Concomitant]
     Active Substance: FLUTICASONE PROPIONATE\SALMETEROL XINAFOATE
  8. CHLORELLA                          /01723301/ [Concomitant]
  9. CHROMIUM PICOLINATE [Concomitant]
     Active Substance: CHROMIUM PICOLINATE
  10. KRILL OIL [Concomitant]
     Active Substance: DIETARY SUPPLEMENT
  11. REFRESH TEARS [Concomitant]
     Active Substance: CARBOXYMETHYLCELLULOSE SODIUM
  12. SYNTHROID [Concomitant]
     Active Substance: LEVOTHYROXINE SODIUM
  13. CYCLOBENZAPRINE [Concomitant]
     Active Substance: CYCLOBENZAPRINE
  14. GAS-X [Concomitant]
     Active Substance: DIMETHICONE
  15. PROAIR HFA [Concomitant]
     Active Substance: ALBUTEROL SULFATE
  16. XYREM [Suspect]
     Active Substance: SODIUM OXYBATE
     Dosage: DOSE ADJUSTMENT
     Route: 048
     Dates: start: 2004, end: 2016
  17. DDAVP [Concomitant]
     Active Substance: DESMOPRESSIN ACETATE
  18. TYLENOL EXTRA STRENGTH [Concomitant]
     Active Substance: ACETAMINOPHEN
  19. VYVANSE [Concomitant]
     Active Substance: LISDEXAMFETAMINE DIMESYLATE
  20. CLARITIN [Concomitant]
     Active Substance: LORATADINE
  21. MAGNESIUM CITRATE. [Concomitant]
     Active Substance: MAGNESIUM CITRATE
  22. SYSTANE BALANCE [Concomitant]
     Active Substance: PROPYLENE GLYCOL
  23. CELEBREX [Concomitant]
     Active Substance: CELECOXIB
  24. AMBIEN [Concomitant]
     Active Substance: ZOLPIDEM TARTRATE
  25. LUGOLS IODINE [Concomitant]
  26. XYREM [Suspect]
     Active Substance: SODIUM OXYBATE
     Dosage: 5.25 G, QD (FIRST DOSE)
     Route: 048
     Dates: start: 201609
  27. XYREM [Suspect]
     Active Substance: SODIUM OXYBATE
     Dosage: 4.25 G, QD (SECOND DOSE)
     Route: 048
     Dates: start: 201609
  28. EC-NAPROSYN [Concomitant]
     Active Substance: NAPROXEN
  29. FLONASE                            /00908302/ [Concomitant]
     Active Substance: MOMETASONE FUROATE
  30. METAMUCIL [Concomitant]
     Active Substance: PLANTAGO SEED
  31. CYTOMEL [Concomitant]
     Active Substance: LIOTHYRONINE SODIUM
  32. MIRALAX [Concomitant]
     Active Substance: POLYETHYLENE GLYCOL 3350
  33. NALTREXONE HCL [Concomitant]
     Active Substance: NALTREXONE HYDROCHLORIDE
  34. NASONEX [Concomitant]
     Active Substance: MOMETASONE FUROATE

REACTIONS (2)
  - Drug ineffective [Unknown]
  - Product taste abnormal [Unknown]
